FAERS Safety Report 17836111 (Version 1)
Quarter: 2020Q2

REPORT INFORMATION
  Report Type: Spontaneous
  Country: IE (occurrence: IE)
  Receive Date: 20200528
  Receipt Date: 20200528
  Transmission Date: 20200714
  Serious: Yes (Hospitalization)
  Sender: FDA-Public Use
  Company Number: IE-AKORN PHARMACEUTICALS-2020AKN00694

PATIENT
  Age: 63 Year
  Sex: Male

DRUGS (1)
  1. CLINDAMYCIN. [Suspect]
     Active Substance: CLINDAMYCIN
     Indication: CELLULITIS
     Dosage: UNK
     Route: 048

REACTIONS (2)
  - Toxic epidermal necrolysis [Recovered/Resolved]
  - Staphylococcal scalded skin syndrome [Recovered/Resolved]
